FAERS Safety Report 5001385-8 (Version None)
Quarter: 2006Q2

REPORT INFORMATION
  Report Type: 
  Country: None (occurrence: None)
  Receive Date: 20060512
  Receipt Date: 20060503
  Transmission Date: 20061013
  Serious: Yes (Hospitalization)
  Sender: FDA-Public Use
  Company Number: US-MERCK-0605USA01165

PATIENT
  Age: 75 Year
  Sex: Male
  Weight: 75 kg

DRUGS (11)
  1. VIOXX [Suspect]
     Indication: PAIN
     Route: 048
     Dates: start: 20010601, end: 20020901
  2. VIOXX [Suspect]
     Route: 048
     Dates: start: 20010601, end: 20020901
  3. VALTREX [Concomitant]
     Route: 065
  4. LANOXIN [Concomitant]
     Route: 065
  5. ACCUPRIL [Concomitant]
     Route: 065
  6. TOPROL-XL [Concomitant]
     Route: 065
  7. FLOVENT [Concomitant]
     Route: 065
  8. LEVAQUIN [Concomitant]
     Route: 065
  9. NORVASC [Concomitant]
     Route: 065
  10. AUGMENTIN '125' [Concomitant]
     Route: 065
  11. HYDROCODONE BITARTRATE + ACETAMINOPHEN [Concomitant]
     Route: 065

REACTIONS (2)
  - CARDIAC DISORDER [None]
  - MYOCARDIAL INFARCTION [None]
